FAERS Safety Report 12248869 (Version 1)
Quarter: 2016Q2

REPORT INFORMATION
  Report Type: Spontaneous
  Country: US (occurrence: None)
  Receive Date: 20160407
  Receipt Date: 20160407
  Transmission Date: 20160815
  Serious: Yes (Hospitalization)
  Sender: FDA-Public Use
  Company Number: None

PATIENT
  Age: 74 Year
  Sex: Female
  Weight: 77.11 kg

DRUGS (2)
  1. MOLYBEDENUM [Concomitant]
  2. ICMETOPROLOL SUCCER, 50 MG [Suspect]
     Active Substance: METOPROLOL SUCCINATE
     Indication: PALPITATIONS
     Route: 048
     Dates: start: 20150401, end: 20160301

REACTIONS (4)
  - Syncope [None]
  - Tachycardia [None]
  - Product substitution issue [None]
  - Therapy cessation [None]

NARRATIVE: CASE EVENT DATE: 20160301
